FAERS Safety Report 10108875 (Version 1)
Quarter: 2014Q2

REPORT INFORMATION
  Report Type: Spontaneous
  Country: US (occurrence: US)
  Receive Date: 20140425
  Receipt Date: 20140425
  Transmission Date: 20141212
  Serious: Yes (Hospitalization)
  Sender: FDA-Public Use
  Company Number: US-ELI_LILLY_AND_COMPANY-US201404005358

PATIENT
  Age: 49 Year
  Sex: Male
  Weight: 93.88 kg

DRUGS (1)
  1. HUMALOG LISPRO [Suspect]
     Indication: PRODUCT USED FOR UNKNOWN INDICATION
     Route: 058

REACTIONS (5)
  - Blood glucose decreased [Unknown]
  - Nervousness [Unknown]
  - Malaise [Unknown]
  - Blood glucose increased [Unknown]
  - Blood glucose decreased [Unknown]
